FAERS Safety Report 5394323-X (Version None)
Quarter: 2007Q3

REPORT INFORMATION
  Report Type: 
  Country: None (occurrence: None)
  Receive Date: 20070723
  Receipt Date: 20070715
  Transmission Date: 20080115
  Serious: Yes (Hospitalization)
  Sender: FDA-Public Use
  Company Number: US-ROCHE-507320

PATIENT
  Age: 55 Year
  Sex: Female
  Weight: 52.6 kg

DRUGS (8)
  1. BONIVA [Suspect]
     Indication: OSTEOPOROSIS
     Route: 065
     Dates: start: 20061001
  2. PLAVIX [Concomitant]
  3. ATENOLOL [Concomitant]
  4. LIPITOR [Concomitant]
  5. NORVASC [Concomitant]
  6. PREDNISONE [Concomitant]
  7. ZOLOFT [Concomitant]
  8. ARAVA [Concomitant]

REACTIONS (1)
  - CEREBROVASCULAR ACCIDENT [None]
